FAERS Safety Report 4469232-0 (Version None)
Quarter: 2004Q4

REPORT INFORMATION
  Report Type: 
  Country: None (occurrence: None)
  Receive Date: 20041008
  Receipt Date: 20040930
  Transmission Date: 20050328
  Serious: Yes (Other)
  Sender: FDA-Public Use
  Company Number: 200417523US

PATIENT
  Sex: Female

DRUGS (5)
  1. KETEK [Suspect]
     Indication: BRONCHITIS CHRONIC
  2. KETEK [Suspect]
     Indication: CONDITION AGGRAVATED
  3. ZYPREXA [Concomitant]
     Dosage: DOSE: UNK
  4. ALBUTEROL [Concomitant]
     Dosage: DOSE: UNK
  5. OTHER RESPIRATORY SYSTEM PRODUCTS [Concomitant]
     Dosage: DOSE: UNK

REACTIONS (1)
  - DEAFNESS [None]
